FAERS Safety Report 6274504-3 (Version None)
Quarter: 2009Q3

REPORT INFORMATION
  Report Type: 
  Country: None (occurrence: None)
  Receive Date: 20090716
  Receipt Date: 20090701
  Transmission Date: 20100115
  Serious: Yes (Life-Threatening, Disabling, Other)
  Sender: FDA-Public Use
  Company Number: A-NJ2009-25566

PATIENT
  Age: 59 Year
  Sex: Female
  Weight: 70.7 kg

DRUGS (4)
  1. VENTAVIS [Suspect]
     Indication: PULMONARY HYPERTENSION
     Dosage: 2.5 UG, 6 X DAY, RESPIRATORY ; 2.5 UG, TID, RESPIRATORY
     Route: 055
     Dates: start: 20090520, end: 20090522
  2. VENTAVIS [Suspect]
     Indication: PULMONARY HYPERTENSION
     Dosage: 2.5 UG, 6 X DAY, RESPIRATORY ; 2.5 UG, TID, RESPIRATORY
     Route: 055
     Dates: start: 20090523, end: 20090525
  3. TRACLEER [Concomitant]
  4. REVATIO [Concomitant]

REACTIONS (3)
  - BRONCHIAL SECRETION RETENTION [None]
  - DYSPHAGIA [None]
  - DYSPNOEA [None]
